FAERS Safety Report 5076467-5 (Version None)
Quarter: 2006Q3

REPORT INFORMATION
  Report Type: 
  Country: None (occurrence: None)
  Receive Date: 20060807
  Receipt Date: 20060726
  Transmission Date: 20061208
  Serious: Yes (Hospitalization)
  Sender: FDA-Public Use
  Company Number: 2006090639

PATIENT
  Age: 68 Year
  Sex: Female

DRUGS (6)
  1. AMLODIPINE [Suspect]
     Indication: DRUG USE FOR UNKNOWN INDICATION
     Dosage: 5 MG (INTERVAL: EVERY DAY), ORAL
     Route: 048
     Dates: start: 20060614
  2. ACETAMINOPHEN [Suspect]
     Indication: DRUG USE FOR UNKNOWN INDICATION
     Dosage: 3 GRAM (INTERVAL: EVERY DAY)
     Dates: start: 20060614
  3. OFLOXACIN [Suspect]
     Indication: DRUG USE FOR UNKNOWN INDICATION
     Dosage: 400 MG (INTERVAL:  EVERY DAY)
     Dates: start: 20060614, end: 20060703
  4. VALSARTAN [Suspect]
     Indication: DRUG USE FOR UNKNOWN INDICATION
     Dosage: 80 MG (INTERVAL:  EVERY DAY), ORAL
     Route: 048
     Dates: start: 20060614
  5. BISOPROLOL FUMARATE [Suspect]
     Indication: DRUG USE FOR UNKNOWN INDICATION
     Dosage: 10 MG (INTERVAL:  EVERY DAY), ORAL
     Route: 048
     Dates: start: 20060614
  6. RIFADIN [Suspect]
     Indication: PYELONEPHRITIS
     Dosage: 1800 MG (300 MG, SIX TIME A DAY), ORAL
     Route: 048
     Dates: start: 20060614, end: 20060627

REACTIONS (6)
  - ALANINE AMINOTRANSFERASE INCREASED [None]
  - ASPARTATE AMINOTRANSFERASE INCREASED [None]
  - BILIRUBIN CONJUGATED INCREASED [None]
  - BLOOD ALKALINE PHOSPHATASE INCREASED [None]
  - BLOOD BILIRUBIN INCREASED [None]
  - GAMMA-GLUTAMYLTRANSFERASE INCREASED [None]
